FAERS Safety Report 4898814-7 (Version None)
Quarter: 2006Q1

REPORT INFORMATION
  Report Type: 
  Country: None (occurrence: None)
  Receive Date: 20060202
  Receipt Date: 20060110
  Transmission Date: 20060701
  Serious: Yes (Disabling)
  Sender: FDA-Public Use
  Company Number: US-GLAXOSMITHKLINE-A0588576A

PATIENT
  Age: 57 Year
  Sex: Male
  Weight: 77.3 kg

DRUGS (3)
  1. AVANDAMET [Suspect]
     Route: 048
     Dates: start: 20041101
  2. HYDROCHLOROTHIAZIDE [Concomitant]
  3. BENICAR [Concomitant]

REACTIONS (5)
  - BLOOD GLUCOSE INCREASED [None]
  - DIZZINESS [None]
  - NECK PAIN [None]
  - PARAESTHESIA [None]
  - PHARMACEUTICAL PRODUCT COMPLAINT [None]
